FAERS Safety Report 12699315 (Version 3)
Quarter: 2016Q4

REPORT INFORMATION
  Report Type: Report from Study
  Country: US (occurrence: US)
  Receive Date: 20160830
  Receipt Date: 20161102
  Transmission Date: 20170207
  Serious: Yes (Death, Hospitalization, Other)
  Sender: FDA-Public Use
  Company Number: US-GILEAD-2016-0230318

PATIENT
  Age: 57 Year
  Sex: Male

DRUGS (1)
  1. AZTREONAM LYSINE [Suspect]
     Active Substance: AZTREONAM LYSINE
     Indication: PRODUCT USED FOR UNKNOWN INDICATION
     Dosage: 75 MG, UNK
     Route: 055
     Dates: start: 20150324, end: 20160824

REACTIONS (7)
  - Pneumothorax [Unknown]
  - Chronic obstructive pulmonary disease [Fatal]
  - Bronchiectasis [Unknown]
  - Pulmonary cavitation [Unknown]
  - Bronchopleural fistula [Unknown]
  - Mycobacterium avium complex infection [Unknown]
  - Off label use [Recovered/Resolved]

NARRATIVE: CASE EVENT DATE: 20150324
